FAERS Safety Report 4547124-6 (Version None)
Quarter: 2005Q1

REPORT INFORMATION
  Report Type: 
  Country: None (occurrence: None)
  Receive Date: 20050107
  Receipt Date: 20041227
  Transmission Date: 20050727
  Serious: Yes (Hospitalization)
  Sender: FDA-Public Use
  Company Number: JP-BRISTOL-MYERS SQUIBB COMPANY-12807699

PATIENT
  Age: 29 Year
  Sex: Male

DRUGS (3)
  1. ZERIT [Suspect]
     Indication: HIV INFECTION
     Dosage: 26-APR-2002 TO 11-JUL-2002, 26-FEB-2003 TO 14-NOV-2003
     Route: 048
     Dates: start: 20020426, end: 20031114
  2. EPIVIR [Suspect]
     Indication: HIV INFECTION
     Dosage: 26-APR-2002 TO 11-JUL-2004, 26-FEB-2003 TO 14-NOV-2003, 03-DEC-2003 TO 23-JAN-2004
     Route: 048
     Dates: start: 20020426, end: 20040123
  3. VIRACEPT [Suspect]
     Indication: HIV INFECTION
     Dosage: 26-FEB-2003 TO 11-SEP-2003, 07-NOV-2003 TO 14-NOV-2003, 03-DEC-2003 TO UNKNOWN
     Route: 048
     Dates: start: 20030226

REACTIONS (3)
  - IMMUNE RECONSTITUTION SYNDROME [None]
  - KAPOSI'S SARCOMA [None]
  - LACTIC ACIDOSIS [None]
